FAERS Safety Report 10043438 (Version 2)
Quarter: 2014Q3

REPORT INFORMATION
  Report Type: Spontaneous
  Country: US (occurrence: US)
  Receive Date: 20140328
  Receipt Date: 20140912
  Transmission Date: 20150326
  Serious: Yes (Other)
  Sender: FDA-Public Use
  Company Number: US-PFIZER INC-2014085493

PATIENT
  Age: 41 Year
  Sex: Female
  Weight: 49.89 kg

DRUGS (5)
  1. LYRICA [Suspect]
     Active Substance: PREGABALIN
     Dosage: UNK
     Route: 048
  2. SYNTHROID [Concomitant]
     Active Substance: LEVOTHYROXINE SODIUM
     Dosage: UNK
  3. LYRICA [Suspect]
     Active Substance: PREGABALIN
     Indication: AUTOIMMUNE NEUROPATHY
     Dosage: CUTTING BACK DOSES
     Route: 048
  4. OXYCODONE [Concomitant]
     Active Substance: OXYCODONE
     Dosage: UNK
  5. LYRICA [Suspect]
     Active Substance: PREGABALIN
     Indication: NEUROPATHY PERIPHERAL
     Dosage: 200 MG, 3X/DAY
     Route: 048
     Dates: start: 2010

REACTIONS (6)
  - Pain [Unknown]
  - Thyroid disorder [Unknown]
  - Dizziness [Unknown]
  - Apparent death [Unknown]
  - Somnolence [Unknown]
  - Abdominal distension [Unknown]

NARRATIVE: CASE EVENT DATE: 2013
